FAERS Safety Report 5662102-1 (Version None)
Quarter: 2008Q1

REPORT INFORMATION
  Report Type: 
  Country: None (occurrence: None)
  Receive Date: 20080312
  Receipt Date: 20080226
  Transmission Date: 20080703
  Serious: Yes (Hospitalization, Other)
  Sender: FDA-Public Use
  Company Number: SE-GENENTECH-252851

PATIENT
  Sex: Female

DRUGS (5)
  1. EFALIZUMAB [Suspect]
     Indication: PSORIASIS
     Dosage: 0.4 ML, 1/WEEK
     Dates: start: 20050331
  2. EFALIZUMAB [Suspect]
     Dosage: 0.5 ML, 1/WEEK
  3. EFALIZUMAB [Suspect]
     Dosage: 100 MG/ML, UNK
     Dates: start: 20050919, end: 20060601
  4. CIPROFLOXACIN [Concomitant]
     Indication: URINARY TRACT INFECTION
  5. ANTIHISTAMINE (UNK INGREDIENTS) [Concomitant]
     Indication: RASH

REACTIONS (3)
  - ANAEMIA [None]
  - BONE MARROW FAILURE [None]
  - ERYTHEMA NODOSUM [None]
